FAERS Safety Report 7403749-1 (Version None)
Quarter: 2011Q2

REPORT INFORMATION
  Report Type: 
  Country: None (occurrence: None)
  Receive Date: 20110408
  Receipt Date: 20110329
  Transmission Date: 20111010
  Serious: Yes (Other)
  Sender: FDA-Public Use
  Company Number: CH-ELI_LILLY_AND_COMPANY-CH201104000370

PATIENT
  Age: 60 Year
  Sex: Female

DRUGS (16)
  1. ZOLPIDEM [Concomitant]
     Indication: DEPRESSION
     Dosage: 12.5 MG, QD
  2. LORAZEPAM [Concomitant]
     Dosage: 1.5 MG, QD
  3. OLANZAPINE [Suspect]
     Dosage: 2.5 MG, QD
  4. LORAZEPAM [Concomitant]
     Dosage: 3 MG, QD
  5. LORAZEPAM [Concomitant]
     Dosage: 2.5 MG, QD
  6. OLANZAPINE [Suspect]
     Dosage: 10 MG, QD
  7. OLANZAPINE [Suspect]
     Dosage: 5 MG, QD
  8. DULOXETINE HYDROCHLORIDE [Suspect]
     Dosage: 60 MG, QD
  9. OLANZAPINE [Suspect]
     Indication: DEPRESSION
     Route: 065
  10. OLANZAPINE [Suspect]
     Dosage: 5 MG, QD
  11. QUETIAPINE [Concomitant]
  12. PREGABALIN [Concomitant]
     Dosage: 100 MG, QD
  13. PREGABALIN [Concomitant]
     Dosage: 25 MG, QD
  14. DULOXETINE HYDROCHLORIDE [Suspect]
     Indication: DEPRESSION
     Dosage: 120 MG, QD
  15. LORAZEPAM [Concomitant]
     Dosage: 3 MG, QD
  16. PREGABALIN [Concomitant]
     Dosage: 150 MG, QD

REACTIONS (6)
  - WEIGHT INCREASED [None]
  - SEROTONIN SYNDROME [None]
  - MENTAL STATUS CHANGES [None]
  - DRUG INEFFECTIVE [None]
  - DRUG WITHDRAWAL SYNDROME [None]
  - GENERAL PHYSICAL HEALTH DETERIORATION [None]
